FAERS Safety Report 4673915-7 (Version None)
Quarter: 2005Q2

REPORT INFORMATION
  Report Type: 
  Country: None (occurrence: None)
  Receive Date: 20050524
  Receipt Date: 20050506
  Transmission Date: 20051028
  Serious: Yes (Hospitalization, Other)
  Sender: FDA-Public Use
  Company Number: JP_050406351

PATIENT
  Age: 20 Year
  Sex: Female

DRUGS (7)
  1. TOBRAMYCIN [Suspect]
     Indication: INFLAMMATION
  2. VANCOMYCIN [Suspect]
     Indication: STAPHYLOCOCCAL INFECTION
  3. VALPROATE SODIUM [Concomitant]
  4. FLOMOXEF [Concomitant]
  5. CEFOZOPRAN [Concomitant]
  6. GALENIC /PANIPENEM/BETAMIPRON [Concomitant]
  7. ARBEKACIN [Concomitant]

REACTIONS (7)
  - DIARRHOEA [None]
  - HAEMORRHAGIC DIATHESIS [None]
  - INCREASED UPPER AIRWAY SECRETION [None]
  - PYREXIA [None]
  - RED MAN SYNDROME [None]
  - STAPHYLOCOCCAL INFECTION [None]
  - TOXIC EPIDERMAL NECROLYSIS [None]
